FAERS Safety Report 25551694 (Version 2)
Quarter: 2025Q3

REPORT INFORMATION
  Report Type: Spontaneous
  Country: EU (occurrence: EU)
  Receive Date: 20250714
  Receipt Date: 20250814
  Transmission Date: 20251020
  Serious: Yes (Other)
  Sender: ELI LILLY AND COMPANY
  Company Number: None

PATIENT
  Age: 56 Year
  Sex: Female

DRUGS (2)
  1. EMGALITY [Suspect]
     Active Substance: GALCANEZUMAB-GNLM
     Indication: Migraine
     Dosage: 120 MG EVERY 4 WEEKS
     Route: 058
     Dates: start: 20250314
  2. EPARINA [Concomitant]
     Indication: Thrombosis prophylaxis
     Route: 065

REACTIONS (2)
  - Migraine [Recovered/Resolved]
  - Therapeutic product effect decreased [Recovered/Resolved]

NARRATIVE: CASE EVENT DATE: 20250316
